FAERS Safety Report 11878655 (Version 2)
Quarter: 2016Q1

REPORT INFORMATION
  Report Type: Spontaneous
  Country: FR (occurrence: FR)
  Receive Date: 20151230
  Receipt Date: 20160107
  Transmission Date: 20160526
  Serious: Yes (Death, Life-Threatening, Other)
  Sender: FDA-Public Use
  Company Number: FR-PFIZER INC-2015471379

PATIENT
  Age: 51 Year
  Sex: Male

DRUGS (9)
  1. DOBUTAMINE [Concomitant]
     Active Substance: DOBUTAMINE\DOBUTAMINE HYDROCHLORIDE
     Indication: CARDIOGENIC SHOCK
     Dosage: UNK
     Route: 065
     Dates: start: 20150923, end: 20150929
  2. KEPPRA [Concomitant]
     Active Substance: LEVETIRACETAM
     Indication: GENERALISED TONIC-CLONIC SEIZURE
     Dosage: UNK
     Route: 065
     Dates: start: 20150923, end: 20150929
  3. AMIKLIN [Concomitant]
     Active Substance: AMIKACIN SULFATE
     Indication: LUNG DISORDER
     Dosage: UNK
     Route: 065
     Dates: start: 20150924
  4. CUBICIN [Concomitant]
     Active Substance: DAPTOMYCIN
     Indication: LUNG DISORDER
     Dosage: UNK
     Route: 065
     Dates: start: 20150924
  5. TAZOCILLINE [Concomitant]
     Active Substance: PIPERACILLIN SODIUM\TAZOBACTAM SODIUM
     Indication: LUNG DISORDER
     Dosage: UNK
     Route: 065
     Dates: start: 20150924
  6. ARGANOVA [Suspect]
     Active Substance: ARGATROBAN
     Indication: HEPARIN-INDUCED THROMBOCYTOPENIA
     Dosage: UNK, 2 UG/KG/MIN
     Route: 041
     Dates: start: 20150926, end: 20150926
  7. ARGANOVA [Suspect]
     Active Substance: ARGATROBAN
     Dosage: 1 UG/KG, 1 MIN
     Route: 041
     Dates: start: 201509, end: 20150930
  8. ARGANOVA [Suspect]
     Active Substance: ARGATROBAN
     Dosage: UNK, 0.5 MCG/KG/MIN
     Dates: start: 20151001
  9. ADRENALINE [Concomitant]
     Active Substance: EPINEPHRINE
     Indication: CARDIOGENIC SHOCK
     Dosage: UNK
     Route: 065

REACTIONS (8)
  - Bleeding time prolonged [Fatal]
  - Shock [Fatal]
  - Pulmonary haemorrhage [Fatal]
  - Haemothorax [Fatal]
  - Hepatocellular injury [Unknown]
  - Agitation [Unknown]
  - Cardiac arrest [Unknown]
  - Pneumothorax [Unknown]

NARRATIVE: CASE EVENT DATE: 201509
